FAERS Safety Report 5925285-1 (Version None)
Quarter: 2008Q4

REPORT INFORMATION
  Report Type: 
  Country: None (occurrence: None)
  Receive Date: 20081021
  Receipt Date: 20081014
  Transmission Date: 20090506
  Serious: Yes (Hospitalization, Other)
  Sender: FDA-Public Use
  Company Number: FR-BRISTOL-MYERS SQUIBB COMPANY-14375299

PATIENT
  Age: 59 Year
  Sex: Female

DRUGS (3)
  1. LYSODREN [Suspect]
     Indication: ADRENOCORTICAL CARCINOMA
     Dosage: 6DOSAGE FORM = 6 TABS;(09AUG08)3TABS/D;(10AUG08)6TABS/D;(11,12AUG08)9TABS/D.DISCONTD ON 14OCT08.
     Route: 048
     Dates: start: 20080809, end: 20081014
  2. HYDROCORTISONE 10MG TAB [Concomitant]
     Indication: SECONDARY ADRENOCORTICAL INSUFFICIENCY
     Dates: start: 20080404
  3. ZOLPIDEM [Concomitant]
     Indication: INSOMNIA

REACTIONS (2)
  - ANAEMIA [None]
  - APLASIA PURE RED CELL [None]
